FAERS Safety Report 12573375 (Version 1)
Quarter: 2016Q3

REPORT INFORMATION
  Report Type: Spontaneous
  Country: US (occurrence: None)
  Receive Date: 20160719
  Receipt Date: 20160719
  Transmission Date: 20161109
  Serious: Yes (Other)
  Sender: FDA-Public Use
  Company Number: None

PATIENT
  Age: 51 Year
  Sex: Female
  Weight: 106.6 kg

DRUGS (10)
  1. POTASSIUM [Concomitant]
     Active Substance: POTASSIUM
  2. PRILOSEC [Concomitant]
     Active Substance: OMEPRAZOLE MAGNESIUM
  3. MORPHINE [Concomitant]
     Active Substance: MORPHINE
  4. VITAMIN B COMPLEX [Concomitant]
     Active Substance: CYANOCOBALAMIN\DEXPANTHENOL\NIACINAMIDE\PYRIDOXINE HYDROCHLORIDE\RIBOFLAVIN 5^-PHOSPHATE SODIUM\THIAMINE HYDROCHLORIDE\VITAMIN B COMPLEX
  5. LOW DOSE ASPRIN [Concomitant]
     Active Substance: ASPIRIN
  6. MOVANTIK [Suspect]
     Active Substance: NALOXEGOL OXALATE
     Indication: CONSTIPATION
     Route: 048
     Dates: start: 20160716, end: 20160716
  7. ATENOL [Concomitant]
     Active Substance: ATENOLOL
  8. TRIAMTERENE. [Concomitant]
     Active Substance: TRIAMTERENE
  9. GABAPENTIN. [Concomitant]
     Active Substance: GABAPENTIN
  10. MAGNESIUM [Concomitant]
     Active Substance: MAGNESIUM

REACTIONS (8)
  - Abdominal pain upper [None]
  - Cold sweat [None]
  - Somnolence [None]
  - Diarrhoea [None]
  - Yawning [None]
  - Vomiting [None]
  - Constipation [None]
  - Hyperhidrosis [None]

NARRATIVE: CASE EVENT DATE: 20160716
